FAERS Safety Report 16088463 (Version 2)
Quarter: 2019Q2

REPORT INFORMATION
  Report Type: Spontaneous
  Country: US (occurrence: US)
  Receive Date: 20190319
  Receipt Date: 20190528
  Transmission Date: 20190711
  Serious: No
  Sender: FDA-Public Use
  Company Number: US-PFIZER INC-2019112277

PATIENT
  Age: 48 Year
  Sex: Female

DRUGS (4)
  1. GABAPENTIN. [Suspect]
     Active Substance: GABAPENTIN
     Dosage: UNK
  2. DEMEROL [Suspect]
     Active Substance: MEPERIDINE HYDROCHLORIDE
     Dosage: UNK
  3. PROVENTIL [Suspect]
     Active Substance: ALBUTEROL
     Dosage: UNK
  4. PHENARGAN PLUS [Suspect]
     Active Substance: ACETAMINOPHEN\PROMETHAZINE HYDROCHLORIDE
     Dosage: UNK

REACTIONS (3)
  - Feeling jittery [Unknown]
  - Drug hypersensitivity [Unknown]
  - Tremor [Unknown]
